FAERS Safety Report 10176116 (Version 3)
Quarter: 2014Q2

REPORT INFORMATION
  Report Type: Spontaneous
  Country: US (occurrence: US)
  Receive Date: 20140516
  Receipt Date: 20140613
  Transmission Date: 20141212
  Serious: No
  Sender: FDA-Public Use
  Company Number: US-PFIZER INC-2014129800

PATIENT
  Sex: Female

DRUGS (1)
  1. VISTARIL [Suspect]
     Dosage: UNK

REACTIONS (3)
  - Nervousness [Unknown]
  - Crying [Unknown]
  - Mental disorder [Unknown]
